FAERS Safety Report 4555460-2 (Version None)
Quarter: 2005Q1

REPORT INFORMATION
  Report Type: 
  Country: None (occurrence: None)
  Receive Date: 20050119
  Receipt Date: 20050106
  Transmission Date: 20050727
  Serious: Yes (Death, Life-Threatening, Disabling, Other)
  Sender: FDA-Public Use
  Company Number: PHEH2005US00576

PATIENT
  Age: 85 Year
  Sex: Female

DRUGS (6)
  1. ZOMETA [Suspect]
     Indication: METASTASES TO BONE
     Dosage: 4 MG, QMO
     Route: 042
     Dates: end: 20041214
  2. ELAVIL [Concomitant]
     Indication: NEUROPATHY
     Dosage: 2.5 MG, QD
     Dates: start: 20041116, end: 20050104
  3. METHADONE HCL [Concomitant]
     Indication: PAIN
     Dosage: 2.5 MG, BID
     Dates: start: 20041207, end: 20050104
  4. OXYCODONE HCL [Concomitant]
     Indication: PAIN
     Dosage: 5 MG, PRN
  5. FOLTX [Concomitant]
     Indication: VITAMIN B12 DEFICIENCY
     Dates: start: 20030101
  6. EFFEXOR [Concomitant]
     Indication: DEPRESSION
     Dosage: 75 MG, QD
     Dates: start: 20020101

REACTIONS (6)
  - BREAST CANCER METASTATIC [None]
  - CEREBROVASCULAR ACCIDENT [None]
  - COGNITIVE DISORDER [None]
  - HALLUCINATION [None]
  - MENTAL STATUS CHANGES [None]
  - UNRESPONSIVE TO PAIN STIMULI [None]
